FAERS Safety Report 12341981 (Version 1)
Quarter: 2016Q2

REPORT INFORMATION
  Report Type: Spontaneous
  Country: US (occurrence: None)
  Receive Date: 20160505
  Receipt Date: 20160505
  Transmission Date: 20160815
  Serious: Yes (Other)
  Sender: FDA-Public Use
  Company Number: None

PATIENT
  Age: 73 Year
  Sex: Female
  Weight: 51.7 kg

DRUGS (1)
  1. ELIQUIS [Suspect]
     Active Substance: APIXABAN
     Indication: MITRAL VALVE REPLACEMENT
     Route: 048
     Dates: start: 20160427, end: 20160503

REACTIONS (4)
  - Headache [None]
  - Confusional state [None]
  - Hypertension [None]
  - Renal impairment [None]

NARRATIVE: CASE EVENT DATE: 20160502
